FAERS Safety Report 6731767-5 (Version None)
Quarter: 2010Q2

REPORT INFORMATION
  Report Type: 
  Country: None (occurrence: None)
  Receive Date: 20100519
  Receipt Date: 20100511
  Transmission Date: 20101027
  Serious: Yes (Other)
  Sender: FDA-Public Use
  Company Number: US-PFIZER INC-2010060045

PATIENT
  Sex: Female
  Weight: 76 kg

DRUGS (7)
  1. CHANTIX [Suspect]
     Indication: SMOKING CESSATION THERAPY
     Dosage: 0.5 MG, 1X/DAY
     Route: 048
     Dates: start: 20100401, end: 20100401
  2. CHANTIX [Suspect]
     Dosage: 0.5 MG, 2X/DAY
     Route: 048
     Dates: start: 20100401
  3. PREVACID [Concomitant]
     Indication: BLOOD CHOLESTEROL INCREASED
     Dosage: UNK
  4. LISINOPRIL [Concomitant]
     Indication: BLOOD CHOLESTEROL INCREASED
     Dosage: UNK
  5. WELLBUTRIN [Concomitant]
     Indication: ANXIETY
     Dosage: UNK
  6. ALPRAZOLAM [Concomitant]
     Indication: STRESS
     Dosage: UNK
  7. ALPRAZOLAM [Concomitant]
     Indication: PANIC ATTACK

REACTIONS (2)
  - CHEST PAIN [None]
  - MENTAL DISORDER [None]
